FAERS Safety Report 12626165 (Version 1)
Quarter: 2016Q3

REPORT INFORMATION
  Report Type: Spontaneous
  Country: BR (occurrence: BR)
  Receive Date: 20160805
  Receipt Date: 20160805
  Transmission Date: 20161109
  Serious: Yes (Other)
  Sender: FDA-Public Use
  Company Number: BR-ELI_LILLY_AND_COMPANY-BR201608001376

PATIENT

DRUGS (1)
  1. GLUCAGON. [Suspect]
     Active Substance: GLUCAGON
     Indication: GLUCAGON TOLERANCE TEST
     Dosage: 1 MG, SINGLE
     Route: 030

REACTIONS (2)
  - Hypotension [Unknown]
  - Seizure [Unknown]
